FAERS Safety Report 5378114-1 (Version None)
Quarter: 2007Q3

REPORT INFORMATION
  Report Type: 
  Country: None (occurrence: None)
  Receive Date: 20070702
  Receipt Date: 20070702
  Transmission Date: 20080115
  Serious: Yes (Hospitalization)
  Sender: FDA-Public Use
  Company Number: None

PATIENT
  Age: 59 Year
  Sex: Female
  Weight: 52.1637 kg

DRUGS (1)
  1. ELIDEL [Suspect]
     Indication: HYPERSENSITIVITY
     Dosage: 1% 30GM
     Dates: start: 20070608, end: 20070610

REACTIONS (8)
  - DYSPNOEA [None]
  - EYE IRRITATION [None]
  - LACRIMATION INCREASED [None]
  - MALAISE [None]
  - NASAL CONGESTION [None]
  - OCULAR HYPERAEMIA [None]
  - PAIN [None]
  - RHINORRHOEA [None]
